FAERS Safety Report 21254936 (Version 2)
Quarter: 2022Q3

REPORT INFORMATION
  Report Type: Spontaneous
  Country: BR (occurrence: BR)
  Receive Date: 20220825
  Receipt Date: 20220829
  Transmission Date: 20221026
  Serious: Yes (Other)
  Sender: FDA-Public Use
  Company Number: BR-TAKEDA-2022TUS056401

PATIENT
  Sex: Male
  Weight: 89 kg

DRUGS (2)
  1. LISDEXAMFETAMINE DIMESYLATE [Suspect]
     Active Substance: LISDEXAMFETAMINE DIMESYLATE
     Indication: Attention deficit hyperactivity disorder
     Dosage: 1 DOSAGE FORM, QD
     Route: 065
  2. LISDEXAMFETAMINE DIMESYLATE [Suspect]
     Active Substance: LISDEXAMFETAMINE DIMESYLATE
     Dosage: 1 DOSAGE FORM
     Route: 065

REACTIONS (12)
  - General physical health deterioration [Unknown]
  - Drug dependence [Unknown]
  - Adverse drug reaction [Unknown]
  - Mental disorder [Unknown]
  - Therapy interrupted [Unknown]
  - Counterfeit product administered [Unknown]
  - Product packaging counterfeit [Unknown]
  - Drug withdrawal syndrome [Unknown]
  - Product physical issue [Unknown]
  - Stress [Unknown]
  - Unevaluable event [Unknown]
  - Fatigue [Unknown]
